FAERS Safety Report 25268538 (Version 1)
Quarter: 2025Q2

REPORT INFORMATION
  Report Type: Spontaneous
  Country: US (occurrence: US)
  Receive Date: 20250505
  Receipt Date: 20250505
  Transmission Date: 20250716
  Serious: Yes (Hospitalization, Disabling)
  Sender: ACCORD
  Company Number: US-MLMSERVICE-20250417-PI483557-00101-1

PATIENT
  Age: 48 Year
  Sex: Female

DRUGS (3)
  1. ALLOPURINOL [Suspect]
     Active Substance: ALLOPURINOL
     Indication: Mantle cell lymphoma
  2. CISPLATIN [Suspect]
     Active Substance: CISPLATIN
     Indication: Mantle cell lymphoma
  3. CYTARABINE [Suspect]
     Active Substance: CYTARABINE
     Indication: Mantle cell lymphoma

REACTIONS (6)
  - Stevens-Johnson syndrome [Unknown]
  - Eye injury [Unknown]
  - Eyelid injury [Unknown]
  - Charles Bonnet syndrome [Recovering/Resolving]
  - Blindness [Unknown]
  - Off label use [Unknown]
